FAERS Safety Report 21733820 (Version 4)
Quarter: 2023Q1

REPORT INFORMATION
  Report Type: Report from Study
  Country: US (occurrence: US)
  Receive Date: 20221215
  Receipt Date: 20230330
  Transmission Date: 20230418
  Serious: Yes (Hospitalization)
  Sender: FDA-Public Use
  Company Number: US-002147023-NVSC2022US250775

PATIENT
  Age: 82 Year
  Sex: Male
  Weight: 85 kg

DRUGS (24)
  1. SCEMBLIX [Suspect]
     Active Substance: ASCIMINIB HYDROCHLORIDE
     Indication: Chronic myeloid leukaemia
     Dosage: 40 MG, BID
     Route: 048
     Dates: start: 20210713, end: 20221020
  2. SCEMBLIX [Suspect]
     Active Substance: ASCIMINIB HYDROCHLORIDE
     Dosage: 40 MG, BID
     Route: 048
     Dates: start: 20221021
  3. PRAVASTATIN [Concomitant]
     Active Substance: PRAVASTATIN
     Indication: Hypercholesterolaemia
     Dosage: UNK
     Route: 065
     Dates: start: 2001
  4. APIXABAN [Concomitant]
     Active Substance: APIXABAN
     Indication: Atrial fibrillation
     Dosage: UNK
     Route: 065
     Dates: start: 2018
  5. TAMSULOSIN [Concomitant]
     Active Substance: TAMSULOSIN
     Indication: Benign prostatic hyperplasia
     Dosage: UNK
     Route: 065
     Dates: start: 2005
  6. ZOLPIDEM [Concomitant]
     Active Substance: ZOLPIDEM TARTRATE
     Indication: Insomnia
     Dosage: UNK
     Route: 065
     Dates: start: 2019
  7. MELATONIN [Concomitant]
     Active Substance: MELATONIN
     Indication: Insomnia
     Dosage: UNK
     Route: 065
     Dates: start: 2019
  8. MAGNESIUM HYDROXIDE [Concomitant]
     Active Substance: MAGNESIUM HYDROXIDE
     Indication: Constipation
     Dosage: UNK
     Route: 048
     Dates: start: 2020
  9. BUMETANIDE [Concomitant]
     Active Substance: BUMETANIDE
     Indication: Cardiac failure
     Dosage: UNK
     Route: 065
     Dates: start: 20210703
  10. BUMETANIDE [Concomitant]
     Active Substance: BUMETANIDE
     Indication: Pleural effusion
  11. SYMBICORT [Concomitant]
     Active Substance: BUDESONIDE\FORMOTEROL FUMARATE DIHYDRATE
     Indication: Chronic obstructive pulmonary disease
     Dosage: 160 MCG- 4.5 MCG
     Route: 065
     Dates: start: 20210709
  12. SYMBICORT [Concomitant]
     Active Substance: BUDESONIDE\FORMOTEROL FUMARATE DIHYDRATE
     Indication: Dyspnoea
  13. DIETARY SUPPLEMENT\UBIDECARENONE [Concomitant]
     Active Substance: DIETARY SUPPLEMENT\UBIDECARENONE
     Indication: Dizziness
     Dosage: UNK
     Route: 065
     Dates: start: 20211008
  14. MAGNESIUM OXIDE [Concomitant]
     Active Substance: MAGNESIUM OXIDE
     Indication: Dizziness
     Dosage: UNK
     Route: 065
     Dates: start: 20211008
  15. VITAMIN B2 [Concomitant]
     Active Substance: RIBOFLAVIN
     Indication: Dizziness
     Dosage: UNK
     Route: 065
     Dates: start: 20211008
  16. MIRALAX [Concomitant]
     Active Substance: POLYETHYLENE GLYCOL 3350
     Indication: Constipation
     Dosage: UNK
     Route: 065
     Dates: start: 20220422
  17. TERAZOSIN [Concomitant]
     Active Substance: TERAZOSIN HYDROCHLORIDE
     Indication: Benign prostatic hyperplasia
     Dosage: UNK
     Route: 065
     Dates: start: 2005
  18. OMEPRAZOLE [Concomitant]
     Active Substance: OMEPRAZOLE
     Indication: Gastrooesophageal reflux disease
     Dosage: UNK
     Route: 065
     Dates: start: 2018
  19. LEVOTHYROXINE [Concomitant]
     Active Substance: LEVOTHYROXINE
     Indication: Hypothyroidism
     Dosage: UNK
     Route: 065
     Dates: start: 2017
  20. SPIRONOLACTONE [Concomitant]
     Active Substance: SPIRONOLACTONE
     Indication: Cardiac failure
     Dosage: UNK
     Route: 065
     Dates: start: 2018
  21. ALBUTEROL [Concomitant]
     Active Substance: ALBUTEROL
     Indication: Chronic obstructive pulmonary disease
     Dosage: 90 MCG/ACTUATION INHALER
     Route: 065
     Dates: start: 2017
  22. ASPIRIN [Concomitant]
     Active Substance: ASPIRIN
     Indication: Coronary artery disease
     Dosage: UNK
     Route: 065
     Dates: start: 2018
  23. METOPROLOL [Concomitant]
     Active Substance: METOPROLOL
     Indication: Coronary artery disease
     Dosage: UNK
     Route: 065
     Dates: start: 2018
  24. ALLOPURINOL [Concomitant]
     Active Substance: ALLOPURINOL
     Indication: Gouty arthritis
     Dosage: UNK
     Route: 065
     Dates: start: 20220128

REACTIONS (1)
  - Brain stem infarction [Recovered/Resolved]

NARRATIVE: CASE EVENT DATE: 20221017
